FAERS Safety Report 7939882-5 (Version None)
Quarter: 2011Q4

REPORT INFORMATION
  Report Type: 
  Country: None (occurrence: None)
  Receive Date: 20111125
  Receipt Date: 20110912
  Transmission Date: 20120403
  Serious: No
  Sender: FDA-Public Use
  Company Number: US-BAYER-2011-089958

PATIENT
  Age: 16 Year
  Sex: Male

DRUGS (3)
  1. ALEVE (CAPLET) [Suspect]
     Indication: MYALGIA
  2. ALEVE (CAPLET) [Suspect]
     Indication: HEADACHE
  3. ALEVE (CAPLET) [Suspect]
     Indication: PAIN
     Dosage: UNK
     Dates: start: 20110801

REACTIONS (1)
  - NO ADVERSE EVENT [None]
